FAERS Safety Report 23774317 (Version 1)
Quarter: 2024Q2

REPORT INFORMATION
  Report Type: Spontaneous
  Country: US (occurrence: US)
  Receive Date: 20240423
  Receipt Date: 20240423
  Transmission Date: 20240715
  Serious: No
  Sender: FDA-Public Use
  Company Number: US-PFIZER INC-202400091727

PATIENT
  Age: 52 Year
  Sex: Female

DRUGS (2)
  1. INLYTA [Suspect]
     Active Substance: AXITINIB
     Dosage: TAKE 2 TABLETS EVERY MORNING AND 3 TABLETS EVERY EVENING
     Dates: start: 20210319
  2. INLYTA [Suspect]
     Active Substance: AXITINIB
     Dosage: ADJUSTED INLYTA DOSE TO 3 TABS AT NIGHT

REACTIONS (1)
  - Asthenia [Recovering/Resolving]
